FAERS Safety Report 5529016-9 (Version None)
Quarter: 2007Q4

REPORT INFORMATION
  Report Type: 
  Country: None (occurrence: None)
  Receive Date: 20071126
  Receipt Date: 20071030
  Transmission Date: 20080405
  Serious: Yes (Hospitalization)
  Sender: FDA-Public Use
  Company Number: CAO07001832

PATIENT
  Sex: Female

DRUGS (2)
  1. ORAL-B MINUTE-FOAM, MELLOW MINT FLAVOR(SODIUM FLUORIDE 1.23 %) LIQUID, [Suspect]
     Dosage: INTRAORAL
     Route: 002
  2. ORAL-B FLUORIDE TRAYS, VERSION UNKNOWN(NOT APPLICABLE) DENTAL TRAY, 1A [Suspect]
     Dosage: INTRAORAL
     Route: 002

REACTIONS (1)
  - HYPERSENSITIVITY [None]
